FAERS Safety Report 6247511-4 (Version None)
Quarter: 2009Q2

REPORT INFORMATION
  Report Type: 
  Country: None (occurrence: None)
  Receive Date: 20090626
  Receipt Date: 20090616
  Transmission Date: 20091009
  Serious: Yes (Other)
  Sender: FDA-Public Use
  Company Number: US-PFIZER INC-2009228738

PATIENT
  Sex: Female
  Weight: 77.551 kg

DRUGS (5)
  1. LIPITOR [Suspect]
     Indication: ARTERIOSCLEROSIS
     Dosage: UNK
     Dates: start: 20080701
  2. LIPITOR [Suspect]
     Indication: BLOOD CHOLESTEROL INCREASED
  3. PLAVIX [Concomitant]
     Dosage: UNK
  4. BENICAR [Concomitant]
     Dosage: UNK
  5. SYNTHROID [Concomitant]
     Dosage: UNK

REACTIONS (1)
  - RENAL IMPAIRMENT [None]
